FAERS Safety Report 5995369-0 (Version None)
Quarter: 2008Q4

REPORT INFORMATION
  Report Type: 
  Country: None (occurrence: None)
  Receive Date: 20081212
  Receipt Date: 20081203
  Transmission Date: 20090506
  Serious: Yes (Congenital Anomaly)
  Sender: FDA-Public Use
  Company Number: FR-JNJFOC-20081201121

PATIENT
  Sex: Female
  Weight: 3.48 kg

DRUGS (5)
  1. TOPIRAMATE [Suspect]
     Indication: DRUG EXPOSURE DURING PREGNANCY
  2. URBANYL [Suspect]
     Dosage: 10 MG IN MORNING, 20 MG IN EVENING
  3. URBANYL [Suspect]
     Indication: DRUG EXPOSURE DURING PREGNANCY
  4. LAMICTAL [Suspect]
     Indication: DRUG EXPOSURE DURING PREGNANCY
  5. TRILEPTAL [Suspect]
     Indication: DRUG EXPOSURE DURING PREGNANCY

REACTIONS (4)
  - DYSMORPHISM [None]
  - EAR DEFORMITY ACQUIRED [None]
  - LIMB MALFORMATION [None]
  - RETROGNATHIA [None]
